FAERS Safety Report 20111644 (Version 2)
Quarter: 2021Q4

REPORT INFORMATION
  Report Type: Spontaneous
  Country: US (occurrence: US)
  Receive Date: 20211125
  Receipt Date: 20211211
  Transmission Date: 20220304
  Serious: Yes (Hospitalization, Other)
  Sender: FDA-Public Use
  Company Number: US-UNITED THERAPEUTICS-UNT-2021-023833

PATIENT
  Age: 59 Year
  Sex: Female

DRUGS (1)
  1. ORENITRAM [Suspect]
     Active Substance: TREPROSTINIL
     Indication: Pulmonary arterial hypertension
     Dosage: 0.25 MG, BID
     Route: 048
     Dates: start: 20211110, end: 20211110

REACTIONS (2)
  - Hypotension [Recovered/Resolved]
  - Cardiopulmonary failure [Recovered/Resolved]

NARRATIVE: CASE EVENT DATE: 20211110
